FAERS Safety Report 4426051-9 (Version None)
Quarter: 2004Q3

REPORT INFORMATION
  Report Type: 
  Country: None (occurrence: None)
  Receive Date: 20040811
  Receipt Date: 20040727
  Transmission Date: 20050211
  Serious: Yes (Hospitalization)
  Sender: FDA-Public Use
  Company Number: ST-2004-007996

PATIENT
  Age: 74 Year
  Sex: Male

DRUGS (5)
  1. OLMETEC [Suspect]
     Indication: HYPERTENSION
     Dosage: 20 MG QD PO
     Route: 048
     Dates: start: 20040602, end: 20040701
  2. EMABERIN [Concomitant]
  3. HARNAL [Concomitant]
  4. LASIX [Concomitant]
  5. ALDACTONE [Concomitant]

REACTIONS (2)
  - BLOOD CREATININE INCREASED [None]
  - RENAL DISORDER [None]
